FAERS Safety Report 4417669-8 (Version None)
Quarter: 2004Q2

REPORT INFORMATION
  Report Type: 
  Country: None (occurrence: None)
  Receive Date: 20040629
  Receipt Date: 20040317
  Transmission Date: 20050107
  Serious: Yes (Hospitalization)
  Sender: FDA-Public Use
  Company Number: USA031254926

PATIENT
  Age: 80 Year
  Sex: Female
  Weight: 109 kg

DRUGS (3)
  1. HUMULIN-HUMAN INSULIN (RDNA): 25% LISPRO, 75% NPL(LI [Suspect]
     Dosage: 19 U/L DAY
     Dates: start: 20020101
  2. CALCIUM [Concomitant]
  3. ALDACTAZIDE [Concomitant]

REACTIONS (11)
  - BLOOD GLUCOSE DECREASED [None]
  - BLOOD GLUCOSE INCREASED [None]
  - CARDIAC DISORDER [None]
  - CARDIOMEGALY [None]
  - CARPAL TUNNEL SYNDROME [None]
  - HYPOAESTHESIA [None]
  - INSOMNIA [None]
  - MEDICATION ERROR [None]
  - SENSORY DISTURBANCE [None]
  - SKIN BURNING SENSATION [None]
  - WEIGHT DECREASED [None]
